FAERS Safety Report 21342882 (Version 2)
Quarter: 2022Q4

REPORT INFORMATION
  Report Type: Spontaneous
  Country: US (occurrence: US)
  Receive Date: 20220916
  Receipt Date: 20221024
  Transmission Date: 20230113
  Serious: Yes (Death, Other)
  Sender: FDA-Public Use
  Company Number: US-GLAXOSMITHKLINE-US2022131897

PATIENT

DRUGS (1)
  1. JEMPERLI [Suspect]
     Active Substance: DOSTARLIMAB-GXLY
     Indication: Endometrial cancer
     Dosage: 500 MG/10 ML (50 MG/ML), SINGLE-DOSE VIAL
     Dates: start: 20220720, end: 20220812

REACTIONS (1)
  - Death [Fatal]

NARRATIVE: CASE EVENT DATE: 20220821
